FAERS Safety Report 9455594 (Version 3)
Quarter: 2013Q3

REPORT INFORMATION
  Report Type: Spontaneous
  Country: US (occurrence: US)
  Receive Date: 20130813
  Receipt Date: 20130909
  Transmission Date: 20140515
  Serious: No
  Sender: FDA-Public Use
  Company Number: US-PFIZER INC-2013232045

PATIENT
  Age: 43 Year
  Sex: Female
  Weight: 62.13 kg

DRUGS (2)
  1. LYRICA [Suspect]
     Indication: DIABETIC NEUROPATHY
     Dosage: 300 MG, 2X/DAY
     Route: 048
     Dates: end: 20130729
  2. CYMBALTA [Concomitant]

REACTIONS (4)
  - Diabetic neuropathy [Unknown]
  - Condition aggravated [Unknown]
  - Pain [Unknown]
  - Sleep disorder [Unknown]
